FAERS Safety Report 24129842 (Version 1)
Quarter: 2024Q3

REPORT INFORMATION
  Report Type: Report from Study
  Country: DE (occurrence: DE)
  Receive Date: 20240724
  Receipt Date: 20240724
  Transmission Date: 20241017
  Serious: No
  Sender: ROCHE
  Company Number: DE-ML42393-1057-009-1_0

PATIENT
  Sex: Female

DRUGS (3)
  1. OCRELIZUMAB [Suspect]
     Active Substance: OCRELIZUMAB
     Indication: Relapsing multiple sclerosis
     Dosage: DOSE FREQUENCY: ONCE
     Route: 042
     Dates: start: 20240701
  2. L-Thyroxin 88ug [Concomitant]
     Dosage: DOSE: 88?DOSE FREQUENCY: QD (EVERY DAY)
     Route: 048
     Dates: start: 2016
  3. CETIRIZINE HYDROCHLORIDE [Concomitant]
     Active Substance: CETIRIZINE HYDROCHLORIDE
     Dosage: DOSE FREQUENCY: ONCE
     Route: 048
     Dates: start: 20240701, end: 20240701

REACTIONS (1)
  - Oral herpes [Recovered/Resolved]
